FAERS Safety Report 14975350 (Version 1)
Quarter: 2018Q2

REPORT INFORMATION
  Report Type: Report from Study
  Country: DE (occurrence: DE)
  Receive Date: 20180605
  Receipt Date: 20180605
  Transmission Date: 20180711
  Serious: Yes (Other)
  Sender: FDA-Public Use
  Company Number: DE-PFIZER INC-2018221820

PATIENT
  Age: 29 Year
  Sex: Male

DRUGS (8)
  1. LORAZEPAM. [Suspect]
     Active Substance: LORAZEPAM
     Dosage: UNK, S-LORAZEPAM-CNS-BENZODIAZEPINE
  2. DIAZEPAM. [Suspect]
     Active Substance: DIAZEPAM
     Dosage: UNK, S-DIAZEPAM-CNS-BENZODIAZEPINE
  3. NORDAZEPAM [Suspect]
     Active Substance: NORDAZEPAM
     Dosage: UNK,S-NORDAZEPAM-CNS-BENZODIAZEPINE
  4. TEMAZEPAM. [Suspect]
     Active Substance: TEMAZEPAM
     Dosage: UNK, S-TEMAZEPAM-CNS-BENZODIAZEPINE
  5. 3,4-METHYLENEDIOXYPYROVALERONE [Suspect]
     Active Substance: METHYLENEDIOXYPYROVALERONE HYDROCHLORIDE
  6. DRONABINOL. [Suspect]
     Active Substance: DRONABINOL
     Indication: PRODUCT USED FOR UNKNOWN INDICATION
     Dosage: UNK
  7. BUPRENORPHINE. [Suspect]
     Active Substance: BUPRENORPHINE
     Dosage: UNK
  8. OXAZEPAM. [Suspect]
     Active Substance: OXAZEPAM
     Dosage: UNK, S-OXAZEPAM-CNS-BENZODIAZEPINE

REACTIONS (5)
  - Substance abuse [Unknown]
  - Injury [Unknown]
  - Dysarthria [Unknown]
  - Drug screen positive [Unknown]
  - Coordination abnormal [Unknown]
